FAERS Safety Report 7661621-6 (Version None)
Quarter: 2011Q3

REPORT INFORMATION
  Report Type: 
  Country: None (occurrence: None)
  Receive Date: 20110805
  Receipt Date: 20101116
  Transmission Date: 20111222
  Serious: No
  Sender: FDA-Public Use
  Company Number: US-ABBOTT-10P-163-0686233-00

PATIENT
  Sex: Female
  Weight: 81.72 kg

DRUGS (15)
  1. ATENOLOL [Concomitant]
     Indication: HYPERTENSION
  2. ODORLESS GARLIC [Concomitant]
     Indication: PRODUCT USED FOR UNKNOWN INDICATION
  3. CALCIUM MAGNESIUM ZINC [Concomitant]
     Indication: PRODUCT USED FOR UNKNOWN INDICATION
  4. LOSARTAN POTASSIUM [Concomitant]
     Indication: HYPERTENSION
  5. VITAMIN B-12 [Concomitant]
     Indication: PRODUCT USED FOR UNKNOWN INDICATION
  6. FISH OIL [Concomitant]
     Indication: PRODUCT USED FOR UNKNOWN INDICATION
  7. AMLODIPINE [Concomitant]
     Indication: HYPERTENSION
  8. WARFARIN SODIUM [Concomitant]
     Indication: MYOCARDIAL INFARCTION
  9. ASCORBIC ACID [Concomitant]
     Indication: PRODUCT USED FOR UNKNOWN INDICATION
  10. VITAMIN D [Concomitant]
     Indication: PRODUCT USED FOR UNKNOWN INDICATION
  11. ALFALFA [Concomitant]
     Indication: ARTHRITIS
  12. GLIPIZIDE [Concomitant]
     Indication: DIABETES MELLITUS
  13. ASPIRIN [Concomitant]
  14. ASPIRIN [Concomitant]
     Indication: PRODUCT USED FOR UNKNOWN INDICATION
  15. NIASPAN [Suspect]
     Indication: BLOOD CHOLESTEROL INCREASED
     Dates: start: 20101004, end: 20101115

REACTIONS (2)
  - PRURITUS GENERALISED [None]
  - PRURITUS [None]
